FAERS Safety Report 7779302-7 (Version None)
Quarter: 2011Q3

REPORT INFORMATION
  Report Type: 
  Country: None (occurrence: None)
  Receive Date: 20110926
  Receipt Date: 20110916
  Transmission Date: 20111222
  Serious: Yes (Hospitalization)
  Sender: FDA-Public Use
  Company Number: CA-ASTRAZENECA-2011SE56017

PATIENT
  Age: 22964 Day
  Sex: Male
  Weight: 104 kg

DRUGS (12)
  1. EZETIMIBE [Concomitant]
     Dates: start: 19800101, end: 20110715
  2. ACTOS [Concomitant]
  3. CRESTOR [Suspect]
     Route: 048
     Dates: start: 20110212, end: 20110715
  4. AMLODIPINE [Concomitant]
  5. ASPIRIN [Concomitant]
  6. RANIRESTAT/PLACEBO [Suspect]
     Indication: DIABETIC NEUROPATHY
     Dosage: RANIRESTAT 40 MG OR RANIRESTAT 80 MG OR PLACEBO, ONCE DAILY
     Route: 048
     Dates: start: 20100529
  7. METFORMIN HCL [Concomitant]
  8. RAMIPRIL [Concomitant]
  9. HYDROCHLOROTHIAZIDE [Concomitant]
  10. LIPITOR [Concomitant]
     Indication: PROPHYLAXIS
     Route: 048
     Dates: start: 19800101, end: 20110211
  11. GLUCONORM [Concomitant]
  12. TYLENOL-500 [Concomitant]

REACTIONS (4)
  - PRESYNCOPE [None]
  - LUNG CONSOLIDATION [None]
  - PNEUMONIA PRIMARY ATYPICAL [None]
  - MYOSITIS [None]
